FAERS Safety Report 9663992 (Version 1)
Quarter: 2013Q4

REPORT INFORMATION
  Report Type: Spontaneous
  Country: JM (occurrence: None)
  Receive Date: 20131030
  Receipt Date: 20131030
  Transmission Date: 20140711
  Serious: Yes (Other)
  Sender: FDA-Public Use
  Company Number: None

PATIENT
  Age: 60 Year
  Sex: Female
  Weight: 59.88 kg

DRUGS (1)
  1. HUMULIN [Suspect]
     Indication: TYPE 2 DIABETES MELLITUS
     Dosage: 30 UNITS A.M. , 15 UNITS P.M.
     Dates: start: 20120404, end: 20131029

REACTIONS (2)
  - Weight increased [None]
  - Visual acuity reduced [None]
